FAERS Safety Report 18579783 (Version 4)
Quarter: 2021Q2

REPORT INFORMATION
  Report Type: Spontaneous
  Country: US (occurrence: US)
  Receive Date: 20201204
  Receipt Date: 20210412
  Transmission Date: 20210717
  Serious: Yes (Other)
  Sender: FDA-Public Use
  Company Number: US-PFIZER INC-2020477905

PATIENT
  Age: 83 Year
  Sex: Female

DRUGS (1)
  1. ARTHROTEC [Suspect]
     Active Substance: DICLOFENAC SODIUM\MISOPROSTOL

REACTIONS (2)
  - Lung neoplasm malignant [Unknown]
  - Pain [Unknown]

NARRATIVE: CASE EVENT DATE: 20210331
